FAERS Safety Report 7722278-9 (Version None)
Quarter: 2011Q3

REPORT INFORMATION
  Report Type: 
  Country: None (occurrence: None)
  Receive Date: 20110831
  Receipt Date: 20110824
  Transmission Date: 20111222
  Serious: Yes (Other)
  Sender: FDA-Public Use
  Company Number: KR-ELI_LILLY_AND_COMPANY-KR201102003156

PATIENT
  Age: 72 Year
  Sex: Female

DRUGS (2)
  1. HUMALOG MIX 75/25 [Suspect]
     Indication: TYPE 2 DIABETES MELLITUS
     Dosage: 30 U, EACH MORNING
     Dates: start: 20101201
  2. HUMALOG MIX 50/50 [Suspect]
     Indication: TYPE 2 DIABETES MELLITUS
     Dosage: 4 U, EACH EVENING
     Dates: start: 20101201

REACTIONS (3)
  - VASCULAR OCCLUSION [None]
  - PARALYSIS [None]
  - PAIN IN EXTREMITY [None]
